FAERS Safety Report 6139650-3 (Version None)
Quarter: 2009Q1

REPORT INFORMATION
  Report Type: 
  Country: None (occurrence: None)
  Receive Date: 20090330
  Receipt Date: 20081024
  Transmission Date: 20090719
  Serious: Yes (Death, Other)
  Sender: FDA-Public Use
  Company Number: 175815USA

PATIENT
  Age: 63 Year
  Sex: Male

DRUGS (4)
  1. IFOSFAMIDE AND MESNA [Suspect]
     Indication: MANTLE CELL LYMPHOMA
     Dosage: 5 GMS/M2 (9.4 GRAM), INTRAVENOUS
     Route: 042
     Dates: start: 20080716
  2. RITUXIMAB [Concomitant]
  3. CARBOPLATIN [Concomitant]
  4. ETOPOSIDE [Concomitant]

REACTIONS (3)
  - CONVULSION [None]
  - MANTLE CELL LYMPHOMA [None]
  - NEUROTOXICITY [None]
